FAERS Safety Report 10486816 (Version 3)
Quarter: 2021Q4

REPORT INFORMATION
  Report Type: Report from Study
  Country: US (occurrence: US)
  Receive Date: 20141001
  Receipt Date: 20211124
  Transmission Date: 20220304
  Serious: Yes (Death, Hospitalization)
  Sender: FDA-Public Use
  Company Number: US-SA-2014SA133718

PATIENT
  Age: 63 Year
  Sex: Female
  Weight: 76 kg

DRUGS (47)
  1. CLOFARABINE [Suspect]
     Active Substance: CLOFARABINE
     Indication: Acute myeloid leukaemia
     Dosage: 30 MG/M2,UNK
     Route: 042
     Dates: start: 20140825, end: 20140829
  2. ACETAMINOPHEN [Concomitant]
     Active Substance: ACETAMINOPHEN
     Dosage: UNK
  3. ALPRAZOLAM [Concomitant]
     Active Substance: ALPRAZOLAM
     Dosage: .5 MG,PRN
     Route: 048
  4. ALTEPLASE [Concomitant]
     Active Substance: ALTEPLASE
     Dosage: UNK
  5. AMINOCAPROIC ACID [Concomitant]
     Active Substance: AMINOCAPROIC ACID
     Dosage: UNK
  6. HEPARIN [Concomitant]
     Active Substance: HEPARIN SODIUM
     Dosage: UNK
  7. HYDROCORTISONE SODIUM SUCCINATE [Concomitant]
     Active Substance: HYDROCORTISONE SODIUM SUCCINATE
     Dosage: UNK
  8. HYDROCHLOROTHIAZIDE [Concomitant]
     Active Substance: HYDROCHLOROTHIAZIDE
     Dosage: UNK
  9. MEROPENEM [Concomitant]
     Active Substance: MEROPENEM
     Dosage: UNK
  10. ZOFRAN [Concomitant]
     Active Substance: ONDANSETRON HYDROCHLORIDE
     Dosage: UNK
  11. PANTOPRAZOLE [Concomitant]
     Active Substance: PANTOPRAZOLE
     Dosage: UNK
  12. SUCRALFATE [Concomitant]
     Active Substance: SUCRALFATE
     Dosage: UNK
  13. VANCOMYCIN [Concomitant]
     Active Substance: VANCOMYCIN
     Dosage: UNK
  14. PHYTONADIONE [Concomitant]
     Active Substance: PHYTONADIONE
     Dosage: UNK
  15. VORICONAZOLE [Concomitant]
     Active Substance: VORICONAZOLE
     Dosage: UNK
  16. OXYMETHOLONE [Concomitant]
     Active Substance: OXYMETHOLONE
     Dosage: UNK
  17. PREDNISONE [Concomitant]
     Active Substance: PREDNISONE
     Dosage: UNK
  18. DEXAMETHASONE [Concomitant]
     Active Substance: DEXAMETHASONE
     Indication: Arthralgia
     Dosage: 40 MG,UNK
  19. ACYCLOVIR [Concomitant]
     Active Substance: ACYCLOVIR
     Dosage: 400 MG,BID
     Route: 048
  20. ALLOPURINOL [Concomitant]
     Active Substance: ALLOPURINOL
     Dosage: 300 MG,QD
     Route: 048
  21. CIPROFLOXACIN [Concomitant]
     Active Substance: CIPROFLOXACIN
     Dosage: 500 MG,Q12H
     Route: 048
  22. DEXTROSE [Concomitant]
     Active Substance: DEXTROSE
     Dosage: UNK UNK,PRN
     Route: 042
  23. ESCITALOPRAM [Concomitant]
     Active Substance: ESCITALOPRAM OXALATE
     Dosage: 10 MG,QD
     Route: 048
     Dates: start: 20140826
  24. FERROUS SULFATE [Concomitant]
     Active Substance: FERROUS SULFATE
     Dosage: 325 MG,QD
     Route: 048
  25. FLUCONAZOLE [Concomitant]
     Active Substance: FLUCONAZOLE
     Dosage: 200 MG,QD
     Route: 048
  26. LORAZEPAM [Concomitant]
     Active Substance: LORAZEPAM
     Dosage: 1 MG,1X
     Route: 048
  27. MORPHINE [Concomitant]
     Active Substance: MORPHINE
     Dosage: 2 MG,PRN
     Route: 042
  28. SODIUM CHLORIDE [Concomitant]
     Active Substance: SODIUM CHLORIDE
     Dosage: 1000 ML,UNK
     Route: 042
  29. CALAMINE [Concomitant]
     Active Substance: CALAMINE\FERRIC OXIDE RED\ZINC OXIDE
     Dosage: UNK UNK,TID
     Route: 061
  30. GLUCOSE OXIDASE;LACTOPEROXIDASE [Concomitant]
     Dosage: 30 ML,BID
     Route: 048
  31. DIPHENHYDRAMINE [Concomitant]
     Active Substance: DIPHENHYDRAMINE
     Dosage: 25 MG,1X
     Route: 048
  32. INSULIN LISPRO [Concomitant]
     Active Substance: INSULIN LISPRO
     Dosage: UNK UNK,TID
     Route: 058
  33. ONDANSETRON [Concomitant]
     Active Substance: ONDANSETRON
     Dosage: 4 MG,Q8H
     Route: 048
  34. POTASSIUM CHLORIDE [Concomitant]
     Active Substance: POTASSIUM CHLORIDE
     Dosage: 40 MEQ,UNK
     Route: 048
  35. MEROPENEM [Concomitant]
     Active Substance: MEROPENEM
     Dosage: 500 MG,Q6H
     Route: 042
  36. GUAIFENESIN [Concomitant]
     Active Substance: GUAIFENESIN
     Dosage: 10 ML,PRN
     Route: 048
  37. LIDOCAINE [Concomitant]
     Active Substance: LIDOCAINE
     Dosage: .5 ML,UNK
     Route: 058
  38. XANAX [Concomitant]
     Active Substance: ALPRAZOLAM
     Dosage: .5 MG,PRN
  39. PHYTONADIONE [Concomitant]
     Active Substance: PHYTONADIONE
     Dosage: 5 MG,UNK
     Route: 048
  40. MAGNESIUM SULFATE [Concomitant]
     Active Substance: MAGNESIUM SULFATE
     Dosage: 4 G,1X
     Route: 042
  41. FILGRASTIM [Concomitant]
     Active Substance: FILGRASTIM
     Dosage: 480 UG,QD
     Route: 058
  42. AMOXICILLIN [Concomitant]
     Active Substance: AMOXICILLIN
     Dosage: 1 DF,BID
     Route: 048
  43. BENZOCAINE [Concomitant]
     Active Substance: BENZOCAINE
     Dosage: UNK UNK,PRN
     Route: 048
  44. ASCORBIC ACID [Concomitant]
     Active Substance: ASCORBIC ACID
     Dosage: 1 DF,QD
     Route: 048
  45. CARBOXYMETHYLCELLULOSE SODIUM [Concomitant]
     Active Substance: CARBOXYMETHYLCELLULOSE SODIUM
     Dosage: UNK UNK,PRN
  46. FUROSEMIDE [Concomitant]
     Active Substance: FUROSEMIDE
     Dosage: 20 MG,PRN
     Route: 042
  47. TIMOLOL MALEATE [Concomitant]
     Active Substance: TIMOLOL MALEATE
     Dosage: 1 DF,QD
     Route: 048

REACTIONS (3)
  - Gastric haemorrhage [Fatal]
  - Mitral valve disease [Recovered/Resolved]
  - Febrile neutropenia [Recovered/Resolved]

NARRATIVE: CASE EVENT DATE: 20140905
